FAERS Safety Report 7376187-8 (Version None)
Quarter: 2011Q1

REPORT INFORMATION
  Report Type: 
  Country: None (occurrence: None)
  Receive Date: 20110325
  Receipt Date: 20110318
  Transmission Date: 20110831
  Serious: Yes (Other)
  Sender: FDA-Public Use
  Company Number: FR-PFIZER INC-2011059617

PATIENT
  Sex: Female

DRUGS (5)
  1. FLUOROURACIL [Suspect]
     Indication: BREAST CANCER
     Dosage: 795 MG, CYCLIC
     Route: 064
     Dates: start: 20030202, end: 20030711
  2. FARMORUBICIN [Suspect]
     Indication: BREAST CANCER
     Dosage: 160 MG, CYCLIC
     Route: 064
     Dates: start: 20030202, end: 20030711
  3. SOLU-MEDROL [Suspect]
     Indication: BREAST CANCER
     Dosage: 60 MG, CYCLIC
     Route: 064
     Dates: start: 20030202, end: 20030711
  4. ENDOXAN [Suspect]
     Indication: BREAST CANCER
     Dosage: 160 MG, CYCLIC
     Route: 064
     Dates: start: 20030202, end: 20030711
  5. ZOPHREN [Suspect]
     Indication: BREAST CANCER
     Dosage: 8 MG, CYCLIC
     Route: 064
     Dates: start: 20030202, end: 20030711

REACTIONS (2)
  - PRECOCIOUS PUBERTY [None]
  - DRUG EXPOSURE DURING PREGNANCY [None]
